FAERS Safety Report 8761069 (Version 2)
Quarter: 2012Q4

REPORT INFORMATION
  Report Type: 
  Country: US (occurrence: US)
  Receive Date: 20120830
  Receipt Date: 20121018
  Transmission Date: 20130627
  Serious: No
  Sender: FDA-Public Use
  Company Number: US-BAYER-2012-089199

PATIENT
  Age: 31 Year
  Sex: Female
  Weight: 161.91 kg

DRUGS (2)
  1. GADAVIST [Suspect]
     Indication: MIGRAINE
     Dosage: 15 ml, ONCE
     Dates: start: 20120720, end: 20120720
  2. GADAVIST [Suspect]
     Indication: HIV INFECTION

REACTIONS (1)
  - Vomiting [None]
